FAERS Safety Report 10153558 (Version 1)
Quarter: 2014Q2

REPORT INFORMATION
  Report Type: Report from Study
  Country: US (occurrence: US)
  Receive Date: 20140505
  Receipt Date: 20140505
  Transmission Date: 20141212
  Serious: Yes (Hospitalization)
  Sender: FDA-Public Use
  Company Number: PHEH2014US008692

PATIENT
  Age: 36 Year
  Sex: Female
  Weight: 46.26 kg

DRUGS (1)
  1. TOBI PODHALER [Suspect]
     Indication: CYSTIC FIBROSIS
     Dosage: 112 MG, TWICE A DAY
     Route: 055
     Dates: start: 201401, end: 201401

REACTIONS (5)
  - Respiratory tract irritation [Recovered/Resolved]
  - Pulmonary function test decreased [Recovered/Resolved]
  - Haemoptysis [Recovered/Resolved]
  - Cystic fibrosis [Recovered/Resolved]
  - Condition aggravated [Recovered/Resolved]
